FAERS Safety Report 9659410 (Version 2)
Quarter: 2013Q4

REPORT INFORMATION
  Report Type: Spontaneous
  Country: EG (occurrence: EG)
  Receive Date: 20131031
  Receipt Date: 20131111
  Transmission Date: 20140711
  Serious: Yes (Life-Threatening, Hospitalization)
  Sender: FDA-Public Use
  Company Number: EG-ROCHE-1297122

PATIENT
  Age: 52 Year
  Sex: Male
  Weight: 70 kg

DRUGS (3)
  1. PEGFERON [Suspect]
     Indication: HEPATITIS C
     Route: 058
     Dates: start: 201301
  2. RIBAVIRIN [Suspect]
     Indication: HEPATITIS C
     Route: 048
     Dates: start: 201301
  3. INSULIN [Concomitant]
     Indication: HYPERGLYCAEMIA
     Route: 058

REACTIONS (5)
  - Diabetes mellitus [Unknown]
  - Diabetic ketoacidosis [Recovered/Resolved with Sequelae]
  - Hyperglycaemia [Recovered/Resolved with Sequelae]
  - Abdominal pain [Recovered/Resolved with Sequelae]
  - Vomiting [Recovered/Resolved with Sequelae]
